FAERS Safety Report 9507799 (Version 4)
Quarter: 2015Q2

REPORT INFORMATION
  Report Type: Spontaneous
  Country: US (occurrence: US)
  Receive Date: 20130909
  Receipt Date: 20150605
  Transmission Date: 20150821
  Serious: Yes (Hospitalization, Disabling)
  Sender: FDA-Public Use
  Company Number: US-SANOFI-AVENTIS-2013SA088419

PATIENT
  Age: 61 Year
  Sex: Female
  Weight: 77.1 kg

DRUGS (19)
  1. DIOVAN HCT [Concomitant]
     Active Substance: HYDROCHLOROTHIAZIDE\VALSARTAN
     Route: 048
  2. CELEBREX [Concomitant]
     Active Substance: CELECOXIB
     Route: 048
  3. ALBUTEROL SULFATE. [Concomitant]
     Active Substance: ALBUTEROL SULFATE
     Route: 055
  4. FLAGYL [Concomitant]
     Active Substance: METRONIDAZOLE\METRONIDAZOLE HYDROCHLORIDE
     Route: 048
  5. NEXIUM [Concomitant]
     Active Substance: ESOMEPRAZOLE MAGNESIUM
     Route: 048
  6. TRAMADOL [Concomitant]
     Active Substance: TRAMADOL
     Route: 048
  7. NEVANAC [Concomitant]
     Active Substance: NEPAFENAC
  8. NITROLINGUAL [Concomitant]
     Active Substance: NITROGLYCERIN
  9. LABETALOL HYDROCHLORIDE. [Concomitant]
     Active Substance: LABETALOL HYDROCHLORIDE
     Route: 048
  10. TRAVATAN [Concomitant]
     Active Substance: TRAVOPROST
  11. DORZOLAMIDE/TIMOLOL [Concomitant]
  12. PLAVIX [Suspect]
     Active Substance: CLOPIDOGREL BISULFATE
     Route: 048
     Dates: start: 20010806, end: 20100819
  13. ASPIRIN. [Concomitant]
     Active Substance: ASPIRIN
  14. GABAPENTIN. [Concomitant]
     Active Substance: GABAPENTIN
     Route: 048
  15. METFORMIN [Concomitant]
     Active Substance: METFORMIN HYDROCHLORIDE
  16. ALTACE [Concomitant]
     Active Substance: RAMIPRIL
  17. FOSAMAX [Concomitant]
     Active Substance: ALENDRONATE SODIUM
     Route: 048
  18. NORVASC [Concomitant]
     Active Substance: AMLODIPINE BESYLATE
     Route: 048
  19. HYDROCHLOROTHIAZIDE/LOSARTAN [Concomitant]
     Route: 048

REACTIONS (10)
  - Pain [Unknown]
  - Haemorrhage [Unknown]
  - Oral candidiasis [Unknown]
  - Back pain [Recovering/Resolving]
  - Gastrooesophageal reflux disease [Recovered/Resolved]
  - Tongue coated [Unknown]
  - Glossitis [Unknown]
  - Multiple injuries [Not Recovered/Not Resolved]
  - Contusion [Unknown]
  - Musculoskeletal pain [Unknown]

NARRATIVE: CASE EVENT DATE: 200108
